FAERS Safety Report 6737524-8 (Version None)
Quarter: 2010Q2

REPORT INFORMATION
  Report Type: 
  Country: None (occurrence: None)
  Receive Date: 20100524
  Receipt Date: 20100510
  Transmission Date: 20101027
  Serious: Yes (Other)
  Sender: FDA-Public Use
  Company Number: CA-JNJFOC-20100304916

PATIENT
  Sex: Female
  Weight: 112 kg

DRUGS (9)
  1. REMICADE [Suspect]
     Indication: CROHN'S DISEASE
     Route: 042
  2. REMICADE [Suspect]
     Route: 042
  3. REMICADE [Suspect]
     Route: 042
  4. LOSEC I.V. [Concomitant]
  5. CELEBREX [Concomitant]
  6. TYLENOL W/ CODEINE [Concomitant]
  7. PAROXETINE HCL [Concomitant]
  8. LIPITOR [Concomitant]
  9. LOMOTIL [Concomitant]

REACTIONS (2)
  - FIBROMYALGIA [None]
  - KIDNEY INFECTION [None]
